FAERS Safety Report 13594079 (Version 6)
Quarter: 2017Q4

REPORT INFORMATION
  Report Type: Report from Study
  Country: US (occurrence: US)
  Receive Date: 20170530
  Receipt Date: 20171206
  Transmission Date: 20180320
  Serious: Yes (Other)
  Sender: FDA-Public Use
  Company Number: US-ALEXION PHARMACEUTICALS INC.-A201705684

PATIENT
  Sex: Female

DRUGS (5)
  1. SOLIRIS [Suspect]
     Active Substance: ECULIZUMAB
     Dosage: 1200 MG, Q2W
     Route: 042
     Dates: start: 20111229, end: 20171115
  2. SOLIRIS [Suspect]
     Active Substance: ECULIZUMAB
     Indication: HAEMOLYTIC URAEMIC SYNDROME
     Dosage: UNK
     Route: 042
  3. SOLIRIS [Suspect]
     Active Substance: ECULIZUMAB
     Dosage: 1200 MG, Q2W
     Route: 042
     Dates: start: 20111229, end: 20171101
  4. PROCRIT [Concomitant]
     Active Substance: ERYTHROPOIETIN
     Indication: PRODUCT USED FOR UNKNOWN INDICATION
     Dosage: UNK
     Route: 065
  5. SOLIRIS [Suspect]
     Active Substance: ECULIZUMAB
     Dosage: 1200 MG, Q2W
     Route: 042
     Dates: start: 20111229, end: 20170707

REACTIONS (16)
  - Renal transplant failure [Unknown]
  - Blood lactate dehydrogenase increased [Unknown]
  - Blood phosphorus increased [Unknown]
  - Malaise [Unknown]
  - Hypertension [Unknown]
  - Pyrexia [Recovered/Resolved]
  - Platelet count decreased [Unknown]
  - Vomiting [Not Recovered/Not Resolved]
  - Red blood cell count decreased [Unknown]
  - Nausea [Not Recovered/Not Resolved]
  - Transplant rejection [Unknown]
  - Contusion [Not Recovered/Not Resolved]
  - Azotaemia [Unknown]
  - Nasopharyngitis [Recovered/Resolved]
  - Blood creatinine increased [Unknown]
  - Blood calcium decreased [Unknown]

NARRATIVE: CASE EVENT DATE: 201509
